FAERS Safety Report 25245253 (Version 1)
Quarter: 2025Q2

REPORT INFORMATION
  Report Type: Report from Study
  Country: DE (occurrence: DE)
  Receive Date: 20250428
  Receipt Date: 20250428
  Transmission Date: 20250716
  Serious: Yes (Other)
  Sender: MYLAN
  Company Number: DE-BRISTOL-MYERS SQUIBB COMPANY-2025-054054

PATIENT
  Age: 71 Year
  Sex: Female

DRUGS (20)
  1. METHOTREXATE [Suspect]
     Active Substance: METHOTREXATE
     Indication: Product used for unknown indication
  2. METHOTREXATE [Suspect]
     Active Substance: METHOTREXATE
     Route: 065
  3. METHOTREXATE [Suspect]
     Active Substance: METHOTREXATE
     Route: 065
  4. METHOTREXATE [Suspect]
     Active Substance: METHOTREXATE
  5. ORENCIA [Suspect]
     Active Substance: ABATACEPT
     Indication: Rheumatic disorder
  6. ORENCIA [Suspect]
     Active Substance: ABATACEPT
     Route: 065
  7. ORENCIA [Suspect]
     Active Substance: ABATACEPT
     Route: 065
  8. ORENCIA [Suspect]
     Active Substance: ABATACEPT
  9. ETANERCEPT [Suspect]
     Active Substance: ETANERCEPT
     Indication: Product used for unknown indication
  10. ETANERCEPT [Suspect]
     Active Substance: ETANERCEPT
     Route: 065
  11. ETANERCEPT [Suspect]
     Active Substance: ETANERCEPT
     Route: 065
  12. ETANERCEPT [Suspect]
     Active Substance: ETANERCEPT
  13. CIMZIA [Suspect]
     Active Substance: CERTOLIZUMAB PEGOL
     Indication: Product used for unknown indication
  14. CIMZIA [Suspect]
     Active Substance: CERTOLIZUMAB PEGOL
     Route: 065
  15. CIMZIA [Suspect]
     Active Substance: CERTOLIZUMAB PEGOL
     Route: 065
  16. CIMZIA [Suspect]
     Active Substance: CERTOLIZUMAB PEGOL
  17. KEVZARA [Suspect]
     Active Substance: SARILUMAB
     Indication: Product used for unknown indication
  18. KEVZARA [Suspect]
     Active Substance: SARILUMAB
     Route: 065
  19. KEVZARA [Suspect]
     Active Substance: SARILUMAB
     Route: 065
  20. KEVZARA [Suspect]
     Active Substance: SARILUMAB

REACTIONS (2)
  - Cataract [Recovered/Resolved]
  - Dizziness [Recovered/Resolved]

NARRATIVE: CASE EVENT DATE: 20230401
